FAERS Safety Report 22525652 (Version 1)
Quarter: 2023Q2

REPORT INFORMATION
  Report Type: Spontaneous
  Country: US (occurrence: None)
  Receive Date: 20230605
  Receipt Date: 20230605
  Transmission Date: 20230721
  Serious: Yes (Other)
  Sender: FDA-Public Use
  Company Number: None

PATIENT
  Age: 47 Year
  Sex: Female

DRUGS (1)
  1. SUBOXONE [Suspect]
     Active Substance: BUPRENORPHINE HYDROCHLORIDE\NALOXONE HYDROCHLORIDE
     Indication: Drug dependence
     Dosage: FREQUENCY : DAILY;?
     Route: 060
     Dates: start: 20230220, end: 20230605

REACTIONS (5)
  - Drug tolerance [None]
  - Nausea [None]
  - Vomiting [None]
  - Constipation [None]
  - Taste disorder [None]

NARRATIVE: CASE EVENT DATE: 20230605
